FAERS Safety Report 4850505-4 (Version None)
Quarter: 2005Q4

REPORT INFORMATION
  Report Type: 
  Country: None (occurrence: None)
  Receive Date: 20051207
  Receipt Date: 20051207
  Transmission Date: 20060501
  Serious: Yes (Hospitalization)
  Sender: FDA-Public Use
  Company Number: None

PATIENT
  Age: 57 Year
  Sex: Male
  Weight: 128.4 kg

DRUGS (9)
  1. WARFARIN [Suspect]
     Dosage: 10 MG QDBY MOUTH
     Dates: start: 20040310, end: 20051018
  2. QUININE SULFATE [Concomitant]
  3. SILDENAFIL CITRATE (VIAGRA) [Concomitant]
  4. ASPIRIN [Concomitant]
  5. CARVEDILOL [Concomitant]
  6. CLOPIDOGREL BISULFATE [Concomitant]
  7. FUROSEMIDE [Concomitant]
  8. DIOVAN [Concomitant]
  9. ZOCOR [Concomitant]

REACTIONS (1)
  - INTERNATIONAL NORMALISED RATIO DECREASED [None]
